FAERS Safety Report 12360983 (Version 1)
Quarter: 2016Q2

REPORT INFORMATION
  Report Type: Spontaneous
  Country: US (occurrence: US)
  Receive Date: 20160512
  Receipt Date: 20160512
  Transmission Date: 20160815
  Serious: No
  Sender: FDA-Public Use
  Company Number: US-UCBSA-2015026243

PATIENT
  Sex: Female

DRUGS (1)
  1. CIMZIA [Suspect]
     Active Substance: CERTOLIZUMAB PEGOL
     Indication: PRODUCT USED FOR UNKNOWN INDICATION
     Dosage: UNKNOWN DOSE

REACTIONS (6)
  - Haemorrhage [Unknown]
  - Dry mouth [Unknown]
  - Mouth breathing [Unknown]
  - Scab [Unknown]
  - Oropharyngeal pain [Unknown]
  - Pain [Unknown]
